FAERS Safety Report 9071742 (Version 1)
Quarter: 2013Q1

REPORT INFORMATION
  Report Type: Report from Study
  Country: US (occurrence: US)
  Receive Date: 20130129
  Receipt Date: 20130129
  Transmission Date: 20140127
  Serious: No
  Sender: FDA-Public Use
  Company Number: US-ABBOTT-12P-163-0926238-00

PATIENT
  Sex: Male
  Weight: 69.46 kg

DRUGS (2)
  1. HUMIRA 40 MG/0.8 ML PEN [Suspect]
     Indication: PSORIASIS
     Dates: start: 200910, end: 201105
  2. HUMIRA 40 MG/0.8 ML PEN [Suspect]
     Dates: start: 20120319

REACTIONS (1)
  - Inappropriate schedule of drug administration [Recovered/Resolved]
